FAERS Safety Report 7824546-9 (Version None)
Quarter: 2011Q4

REPORT INFORMATION
  Report Type: 
  Country: None (occurrence: None)
  Receive Date: 20111019
  Receipt Date: 20111005
  Transmission Date: 20120403
  Serious: Yes (Other)
  Sender: FDA-Public Use
  Company Number: US-ELI_LILLY_AND_COMPANY-US201011001658

PATIENT
  Sex: Female

DRUGS (35)
  1. SYNTHROID [Concomitant]
  2. VITAMIN B-12 [Concomitant]
  3. SIMVASTATIN [Concomitant]
  4. FORTEO [Suspect]
     Dosage: 20 UG, DAILY (1/D)
     Route: 065
  5. FORTEO [Suspect]
     Dosage: 20 UG, QD
     Route: 065
  6. MULTI-VITAMIN [Concomitant]
     Dosage: UNK, DAILY (1/D)
  7. METOPROLOL TARTRATE [Concomitant]
  8. OXYBUTYNIN [Concomitant]
  9. HYDROMORPHONE HCL [Concomitant]
     Dosage: UNK, AS NEEDED
  10. PLAVIX [Concomitant]
  11. CLONAZEPAM [Concomitant]
  12. WELLBUTRIN [Concomitant]
  13. HYDROCODONE BITARTRATE [Concomitant]
  14. FORTEO [Suspect]
     Dosage: 20 UG, QD
     Route: 065
  15. NEXIUM [Concomitant]
  16. COGENTIN [Concomitant]
  17. FIORICET [Concomitant]
     Dosage: UNK, AS NEEDED
  18. CALCIUM CARBONATE [Concomitant]
  19. LAMICTAL [Concomitant]
  20. CELEBREX [Concomitant]
  21. RANITIDINE [Concomitant]
  22. PAXIL [Concomitant]
  23. TRAZODONE HYDROCHLORIDE [Concomitant]
  24. VITAMIN E /00110501/ [Concomitant]
  25. TORADOL [Concomitant]
     Dosage: UNK, AS NEEDED
  26. FORTEO [Suspect]
     Indication: OSTEOPOROSIS
     Dosage: 20 UG, DAILY (1/D)
     Route: 065
     Dates: start: 20100601
  27. FORTEO [Suspect]
     Dosage: 20 UG, QD
  28. WELLBATRIN [Concomitant]
  29. ASPIRIN [Concomitant]
  30. STOOL SOFTENER [Concomitant]
  31. FORTEO [Suspect]
     Dosage: 20 UG, QD
  32. FORTEO [Suspect]
     Dosage: 20 UG, QD
  33. ABILIFY [Concomitant]
  34. VITAMIN D [Concomitant]
  35. PHENERGAN HCL [Concomitant]
     Dosage: UNK, AS NEEDED

REACTIONS (10)
  - DIZZINESS [None]
  - CEREBROVASCULAR ACCIDENT [None]
  - INJECTION SITE PAIN [None]
  - SPEECH DISORDER [None]
  - UPPER LIMB FRACTURE [None]
  - FALL [None]
  - TOOTH INJURY [None]
  - PAIN [None]
  - INJECTION SITE HAEMATOMA [None]
  - TOOTH FRACTURE [None]
